FAERS Safety Report 6007892-3 (Version None)
Quarter: 2008Q4

REPORT INFORMATION
  Report Type: 
  Country: None (occurrence: None)
  Receive Date: 20081217
  Receipt Date: 20080709
  Transmission Date: 20090506
  Serious: No
  Sender: FDA-Public Use
  Company Number: US-ASTRAZENECA-2008UW13806

PATIENT
  Age: 68 Year
  Sex: Female

DRUGS (3)
  1. CRESTOR [Suspect]
     Route: 048
     Dates: start: 20080623
  2. SYNTHROID [Concomitant]
  3. AMBIEN [Concomitant]
     Indication: SLEEP DISORDER

REACTIONS (4)
  - CYSTITIS [None]
  - FUNGAL INFECTION [None]
  - NERVOUSNESS [None]
  - POLLAKIURIA [None]
